FAERS Safety Report 18767870 (Version 1)
Quarter: 2021Q1

REPORT INFORMATION
  Report Type: Spontaneous
  Country: US (occurrence: US)
  Receive Date: 20210120
  Receipt Date: 20210120
  Transmission Date: 20210419
  Serious: No
  Sender: FDA-Public Use
  Company Number: None

PATIENT
  Age: 78 Year
  Sex: Female
  Weight: 78.02 kg

DRUGS (8)
  1. DEXAMETHASONE 20MG [Concomitant]
     Active Substance: DEXAMETHASONE
  2. AVASTIN [Concomitant]
     Active Substance: BEVACIZUMAB
  3. PACLITAXEL 30MG [Concomitant]
  4. DIPHENYDRANMINE 50MG [Concomitant]
  5. AVASTIN [Suspect]
     Active Substance: BEVACIZUMAB
     Indication: ENDOMETRIAL CANCER
     Route: 042
  6. FAMOTIDINE 20MG [Concomitant]
     Active Substance: FAMOTIDINE
  7. ONDANSETRON 4MG [Concomitant]
     Active Substance: ONDANSETRON
  8. PACLITAXEL 100MG [Concomitant]

REACTIONS (1)
  - Urinary incontinence [None]

NARRATIVE: CASE EVENT DATE: 20210120
